FAERS Safety Report 5846657-X (Version None)
Quarter: 2008Q3

REPORT INFORMATION
  Report Type: 
  Country: None (occurrence: None)
  Receive Date: 20080815
  Receipt Date: 20080806
  Transmission Date: 20090109
  Serious: Yes (Hospitalization)
  Sender: FDA-Public Use
  Company Number: B0531512A

PATIENT
  Age: 89 Year
  Sex: Male

DRUGS (6)
  1. RYTMONORM [Suspect]
     Indication: ATRIAL FIBRILLATION
     Route: 048
     Dates: start: 20080502, end: 20080702
  2. DIGOXIN [Suspect]
     Indication: ATRIAL FIBRILLATION
     Route: 048
     Dates: start: 20080502, end: 20080702
  3. ACETYLSALICYLATE LYSINE [Concomitant]
     Indication: PROPHYLAXIS
     Route: 048
  4. LEVOTHYROXINE SODIUM [Concomitant]
  5. OXAZEPAM [Concomitant]
  6. FINASTERIDE [Concomitant]

REACTIONS (3)
  - ATRIOVENTRICULAR BLOCK COMPLETE [None]
  - PULMONARY OEDEMA [None]
  - RENAL FAILURE ACUTE [None]
